FAERS Safety Report 12481680 (Version 1)
Quarter: 2016Q2

REPORT INFORMATION
  Report Type: Spontaneous
  Country: US (occurrence: US)
  Receive Date: 20160620
  Receipt Date: 20160620
  Transmission Date: 20160815
  Serious: Yes (Other)
  Sender: FDA-Public Use
  Company Number: PHEH2016US014372

PATIENT
  Age: 51 Year
  Sex: Female
  Weight: 71 kg

DRUGS (3)
  1. SUTENT [Suspect]
     Active Substance: SUNITINIB MALATE
     Dosage: 25 MG QD
     Route: 048
     Dates: start: 20150225
  2. GLEEVEC [Suspect]
     Active Substance: IMATINIB MESYLATE
     Indication: GASTROINTESTINAL STROMAL TUMOUR
     Dosage: UNK UNK, QD
     Route: 065
     Dates: start: 2008, end: 2012
  3. SUTENT [Suspect]
     Active Substance: SUNITINIB MALATE
     Indication: GASTROINTESTINAL STROMAL TUMOUR
     Dosage: 37.5 MG, QD
     Route: 048
     Dates: start: 20121003

REACTIONS (8)
  - Gastrointestinal stromal tumour [Unknown]
  - Hypertension [Unknown]
  - Weight increased [Unknown]
  - Small intestinal obstruction [Unknown]
  - Sarcomatosis [Unknown]
  - Hypothyroidism [Unknown]
  - Malignant neoplasm progression [Unknown]
  - Diarrhoea [Unknown]

NARRATIVE: CASE EVENT DATE: 201307
